FAERS Safety Report 8341572-4 (Version None)
Quarter: 2012Q2

REPORT INFORMATION
  Report Type: 
  Country: None (occurrence: None)
  Receive Date: 20120507
  Receipt Date: 20120502
  Transmission Date: 20120825
  Serious: Yes (Life-Threatening)
  Sender: FDA-Public Use
  Company Number: US-ASTRAZENECA-2011SE22361

PATIENT
  Age: 54 Year
  Sex: Female
  Weight: 79.4 kg

DRUGS (4)
  1. SEROQUEL [Suspect]
     Route: 048
     Dates: start: 20050101
  2. ALPRAZOLAM [Concomitant]
     Indication: ANXIETY
  3. SEROQUEL [Suspect]
     Indication: BIPOLAR DISORDER
     Route: 048
  4. SEROQUEL [Suspect]
     Route: 048

REACTIONS (13)
  - HEART RATE INCREASED [None]
  - IMPULSIVE BEHAVIOUR [None]
  - HYPERTENSION [None]
  - INTENTIONAL DRUG MISUSE [None]
  - SUDDEN CARDIAC DEATH [None]
  - URINARY INCONTINENCE [None]
  - AGGRESSION [None]
  - THERAPEUTIC RESPONSE UNEXPECTED [None]
  - WEIGHT INCREASED [None]
  - DEPRESSED MOOD [None]
  - BLOOD CHOLESTEROL INCREASED [None]
  - SKIN PAPILLOMA [None]
  - HEART RATE IRREGULAR [None]
